FAERS Safety Report 14954723 (Version 1)
Quarter: 2018Q2

REPORT INFORMATION
  Report Type: Spontaneous
  Country: AU (occurrence: AU)
  Receive Date: 20180530
  Receipt Date: 20180530
  Transmission Date: 20180711
  Serious: Yes (Life-Threatening, Other)
  Sender: FDA-Public Use
  Company Number: AU-GILEAD-2018-0340970

PATIENT
  Sex: Male

DRUGS (7)
  1. EPCLUSA [Suspect]
     Active Substance: SOFOSBUVIR\VELPATASVIR
     Indication: PRODUCT USED FOR UNKNOWN INDICATION
     Dosage: UNK
     Route: 065
     Dates: start: 20171201, end: 20180223
  2. PERINDOPRIL [Concomitant]
     Active Substance: PERINDOPRIL
  3. PREDNISONE. [Concomitant]
     Active Substance: PREDNISONE
  4. CELECOXIB. [Concomitant]
     Active Substance: CELECOXIB
  5. TRAMADOL. [Concomitant]
     Active Substance: TRAMADOL
  6. RIBAVIRIN. [Suspect]
     Active Substance: RIBAVIRIN
     Indication: PRODUCT USED FOR UNKNOWN INDICATION
     Dosage: UNK
     Route: 065
     Dates: start: 20171201, end: 20180223
  7. ZOMAX                              /00541202/ [Concomitant]

REACTIONS (1)
  - Hepatocellular carcinoma [Unknown]
